FAERS Safety Report 6728443-1 (Version None)
Quarter: 2010Q2

REPORT INFORMATION
  Report Type: 
  Country: None (occurrence: None)
  Receive Date: 20100517
  Receipt Date: 20100504
  Transmission Date: 20101027
  Serious: Yes (Other)
  Sender: FDA-Public Use
  Company Number: US-ELI_LILLY_AND_COMPANY-US201005001823

PATIENT
  Sex: Female

DRUGS (14)
  1. FORTEO [Suspect]
     Dosage: UNK, UNK
     Dates: start: 20070101
  2. FORTEO [Suspect]
     Dosage: UNK, UNK
     Dates: start: 20080101
  3. FORTEO [Suspect]
     Dates: start: 20081201
  4. FORTEO [Suspect]
     Dates: start: 20100427
  5. METHOTREXATE [Concomitant]
     Dosage: 20 MG, UNK
  6. LASIX [Concomitant]
     Dosage: UNK, AS NEEDED
  7. VITAMIN TAB [Concomitant]
  8. FISH OIL [Concomitant]
  9. VITAMIN D [Concomitant]
  10. VITAMIN B-12 [Concomitant]
  11. VITAMIN B-12 [Concomitant]
  12. VITAMIN B6 [Concomitant]
  13. SOMA [Concomitant]
     Dosage: UNK, AS NEEDED
  14. DEMEROL [Concomitant]

REACTIONS (14)
  - ACTIVITIES OF DAILY LIVING IMPAIRED [None]
  - BODY HEIGHT DECREASED [None]
  - CONSTIPATION [None]
  - DRUG INEFFECTIVE [None]
  - FALL [None]
  - HUMERUS FRACTURE [None]
  - HYPOAESTHESIA [None]
  - INJECTION SITE HAEMATOMA [None]
  - INJECTION SITE PAIN [None]
  - JOINT INJURY [None]
  - SKIN LACERATION [None]
  - SPINAL FRACTURE [None]
  - WHEELCHAIR USER [None]
  - WOUND INFECTION STAPHYLOCOCCAL [None]
